FAERS Safety Report 6048535-2 (Version None)
Quarter: 2009Q1

REPORT INFORMATION
  Report Type: 
  Country: None (occurrence: None)
  Receive Date: 20090123
  Receipt Date: 20090113
  Transmission Date: 20090719
  Serious: Yes (Death)
  Sender: FDA-Public Use
  Company Number: JP-PFIZER INC-2008154465

PATIENT

DRUGS (15)
  1. ZYVOX [Suspect]
     Indication: PYOTHORAX
     Dosage: 600 MG, 2X/DAY
     Route: 042
     Dates: start: 20081118, end: 20081130
  2. FIRSTCIN [Concomitant]
     Indication: PYOTHORAX
     Route: 042
  3. STRONG NEO-MINOPHAGEN C [Concomitant]
     Indication: HEPATIC FUNCTION ABNORMAL
     Route: 042
     Dates: start: 20081121, end: 20081205
  4. ADELAVIN [Concomitant]
     Indication: HEPATIC FUNCTION ABNORMAL
     Route: 042
     Dates: start: 20081121, end: 20081205
  5. OLMETEC [Concomitant]
     Indication: HYPERTENSION
     Dates: end: 20081205
  6. ACETYLSALICYLIC ACID [Concomitant]
     Indication: CEREBRAL INFARCTION
     Dates: end: 20081205
  7. AMLODIPINE [Concomitant]
     Indication: HYPERTENSION
     Dates: end: 20081205
  8. PREDONINE [Concomitant]
     Indication: INTERSTITIAL LUNG DISEASE
     Dates: end: 20081205
  9. GASTER [Concomitant]
     Indication: GASTRIC ULCER
     Dates: end: 20081205
  10. BIOFERMIN [Concomitant]
     Indication: DIARRHOEA
     Dates: end: 20081205
  11. EUGLUCON [Concomitant]
     Indication: HYPERGLYCAEMIA
     Dates: end: 20081205
  12. SODIUM CHLORIDE [Concomitant]
     Indication: HYPONATRAEMIA
     Route: 042
     Dates: start: 20081121, end: 20081205
  13. SODIUM CHLORIDE [Concomitant]
     Indication: HYPOCHLORAEMIA
  14. MUCOSOLVAN [Concomitant]
     Indication: SPUTUM RETENTION
     Dates: end: 20081205
  15. MODACIN [Concomitant]
     Indication: PYOTHORAX
     Route: 042
     Dates: start: 20081128, end: 20081205

REACTIONS (1)
  - INTERSTITIAL LUNG DISEASE [None]
